FAERS Safety Report 12795109 (Version 2)
Quarter: 2017Q3

REPORT INFORMATION
  Report Type: Spontaneous
  Country: JP (occurrence: JP)
  Receive Date: 20160929
  Receipt Date: 20170714
  Transmission Date: 20171127
  Serious: Yes (Other)
  Sender: FDA-Public Use
  Company Number: JP-GLAXOSMITHKLINE-JP2016JPN140836

PATIENT
  Age: 90 Year
  Sex: Male

DRUGS (1)
  1. ACYCLOVIR. [Suspect]
     Active Substance: ACYCLOVIR
     Indication: HERPES ZOSTER DISSEMINATED
     Dosage: 10 MG/KG, 1D
     Route: 048

REACTIONS (3)
  - Viral vasculitis [Unknown]
  - Subarachnoid haemorrhage [Unknown]
  - Altered state of consciousness [Unknown]
